FAERS Safety Report 12275567 (Version 1)
Quarter: 2016Q2

REPORT INFORMATION
  Report Type: Spontaneous
  Country: US (occurrence: US)
  Receive Date: 20160417
  Receipt Date: 20160417
  Transmission Date: 20160815
  Serious: No
  Sender: FDA-Public Use
  Company Number: US-TEVA-647942USA

PATIENT
  Sex: Male

DRUGS (4)
  1. AZELASTINE [Concomitant]
     Active Substance: AZELASTINE
     Route: 065
  2. PREDNISONE. [Concomitant]
     Active Substance: PREDNISONE
     Route: 065
  3. COPAXONE [Suspect]
     Active Substance: GLATIRAMER ACETATE
     Indication: MULTIPLE SCLEROSIS
     Route: 058
     Dates: start: 201404
  4. BETAMETHASONE CLOTRIMAZOLE [Concomitant]
     Active Substance: BETAMETHASONE DIPROPIONATE\CLOTRIMAZOLE
     Route: 065

REACTIONS (4)
  - Injection site pain [Unknown]
  - Incorrect route of drug administration [Unknown]
  - Motor dysfunction [Unknown]
  - Abdominal pain [Unknown]
